FAERS Safety Report 5003254-6 (Version None)
Quarter: 2006Q2

REPORT INFORMATION
  Report Type: 
  Country: None (occurrence: None)
  Receive Date: 20060512
  Receipt Date: 20060501
  Transmission Date: 20061013
  Serious: Yes (Other)
  Sender: FDA-Public Use
  Company Number: 2006-04-0265

PATIENT
  Age: 50 Year
  Sex: Female
  Weight: 53.0709 kg

DRUGS (2)
  1. NASONEX [Suspect]
     Indication: RHINITIS
     Dosage: 2 SPRAY NASAL SPRAY
     Route: 045
     Dates: start: 20060322, end: 20060322
  2. AVELOX [Concomitant]

REACTIONS (4)
  - EYE SWELLING [None]
  - PRURITUS [None]
  - SWELLING FACE [None]
  - THROAT IRRITATION [None]
